FAERS Safety Report 10612470 (Version 2)
Quarter: 2015Q1

REPORT INFORMATION
  Report Type: Report from Study
  Country: US (occurrence: US)
  Receive Date: 20141127
  Receipt Date: 20150115
  Transmission Date: 20150720
  Serious: Yes (Hospitalization)
  Sender: FDA-Public Use
  Company Number: US-BIOGENIDEC-2014BI122881

PATIENT
  Age: 19 Year
  Sex: Male

DRUGS (1)
  1. AVONEX [Suspect]
     Active Substance: INTERFERON BETA-1A
     Indication: MULTIPLE SCLEROSIS
     Route: 030
     Dates: start: 20110508

REACTIONS (8)
  - Gun shot wound [Not Recovered/Not Resolved]
  - Colon injury [Not Recovered/Not Resolved]
  - Dysuria [Not Recovered/Not Resolved]
  - Disorientation [Recovered/Resolved]
  - Spinal cord injury [Not Recovered/Not Resolved]
  - Urinary tract infection [Recovered/Resolved]
  - Drug dose omission [Unknown]
  - Paralysis [Not Recovered/Not Resolved]

NARRATIVE: CASE EVENT DATE: 2012
